FAERS Safety Report 6820844-6 (Version None)
Quarter: 2010Q3

REPORT INFORMATION
  Report Type: 
  Country: None (occurrence: None)
  Receive Date: 20100707
  Receipt Date: 20070709
  Transmission Date: 20110219
  Serious: No
  Sender: FDA-Public Use
  Company Number: US-PFIZER INC-2007056096

PATIENT
  Sex: Female

DRUGS (7)
  1. ZOLOFT [Suspect]
     Indication: DEPRESSION
     Route: 048
     Dates: start: 20070516
  2. ZOLOFT [Suspect]
     Indication: OBSESSIVE-COMPULSIVE DISORDER
  3. ZOLOFT [Suspect]
     Indication: POST-TRAUMATIC STRESS DISORDER
  4. METHADONE [Concomitant]
     Dates: start: 20061101
  5. SEROQUEL [Concomitant]
     Dates: start: 20070516
  6. ALL OTHER THERAPEUTIC PRODUCTS [Concomitant]
     Dates: start: 20070516
  7. RISPERDAL [Concomitant]
     Dates: start: 20070516

REACTIONS (2)
  - DRUG INEFFECTIVE [None]
  - DRUG SCREEN FALSE POSITIVE [None]
